FAERS Safety Report 5834530 (Version 3)
Quarter: 2020Q3

REPORT INFORMATION
  Report Type: Spontaneous
  Country: FR (occurrence: FR)
  Receive Date: 20050711
  Receipt Date: 20200930
  Transmission Date: 20201103
  Serious: Yes (Hospitalization)
  Sender: FDA-Public Use
  Company Number: PHRM2005FR02042

PATIENT
  Age: 64 Year
  Sex: Male

DRUGS (6)
  1. THIOCOLCHICOSIDE [Concomitant]
     Active Substance: THIOCOLCHICOSIDE
     Indication: BACK PAIN
     Route: 048
     Dates: start: 20050114, end: 20050124
  2. FLUVASTATIN [Suspect]
     Active Substance: FLUVASTATIN SODIUM
     Indication: HYPERCHOLESTEROLAEMIA
     Dosage: 1 DF, QD
     Route: 048
     Dates: start: 20030511, end: 20050511
  3. NEXEN [Concomitant]
     Active Substance: NIMESULIDE
     Indication: BACK PAIN
     Dosage: UNK
     Route: 048
     Dates: start: 20050114, end: 20050124
  4. ZAMUDOL [Concomitant]
     Active Substance: TRAMADOL HYDROCHLORIDE
     Indication: BACK PAIN
     Route: 048
     Dates: start: 20050114, end: 20050124
  5. AMLOR [Concomitant]
     Active Substance: AMLODIPINE BESYLATE
     Indication: PRODUCT USED FOR UNKNOWN INDICATION
     Dosage: UNK
     Route: 048
  6. EUPANTOL [Concomitant]
     Active Substance: PANTOPRAZOLE SODIUM
     Indication: BACK PAIN
     Dosage: UNK
     Route: 048
     Dates: start: 20050114, end: 20050124

REACTIONS (5)
  - Rash [Recovered/Resolved]
  - Dermatitis bullous [Recovered/Resolved]
  - Blood immunoglobulin E increased [Recovered/Resolved]
  - Pruritus [Recovered/Resolved]
  - Pemphigus [Recovered/Resolved]

NARRATIVE: CASE EVENT DATE: 20050201
